FAERS Safety Report 21108917 (Version 1)
Quarter: 2022Q3

REPORT INFORMATION
  Report Type: Report from Study
  Country: CA (occurrence: CA)
  Receive Date: 20220721
  Receipt Date: 20220721
  Transmission Date: 20221026
  Serious: Yes (Other)
  Sender: FDA-Public Use
  Company Number: CA-CELGENE-CAN-20220301929

PATIENT
  Age: 53 Year
  Sex: Female
  Weight: 59.9 kg

DRUGS (5)
  1. ABRAXANE [Suspect]
     Active Substance: PACLITAXEL
     Indication: Pancreatic carcinoma metastatic
     Dosage: 140 MILLIGRAM
     Route: 042
  2. ABRAXANE [Suspect]
     Active Substance: PACLITAXEL
     Dosage: (CYCLE 4, DAY 8)
     Route: 042
     Dates: start: 20220203
  3. ABRAXANE [Suspect]
     Active Substance: PACLITAXEL
     Dosage: (CYCLE 5, DAY 1)
     Route: 042
     Dates: start: 20220217
  4. DEXAMETHASONE [Concomitant]
     Active Substance: DEXAMETHASONE
     Indication: Product used for unknown indication
     Dosage: FREQUENCY TEXT: NOT PROVIDED
     Route: 065
  5. VITAMINS [Concomitant]
     Active Substance: VITAMINS
     Indication: Product used for unknown indication
     Dosage: FREQUENCY TEXT: NOT PROVIDED
     Route: 065

REACTIONS (3)
  - Product dose omission issue [Unknown]
  - Biliary obstruction [Unknown]
  - Blood alkaline phosphatase increased [Unknown]

NARRATIVE: CASE EVENT DATE: 20220201
